FAERS Safety Report 7619883-7 (Version None)
Quarter: 2011Q3

REPORT INFORMATION
  Report Type: 
  Country: None (occurrence: None)
  Receive Date: 20110719
  Receipt Date: 20110705
  Transmission Date: 20111222
  Serious: Yes (Hospitalization)
  Sender: FDA-Public Use
  Company Number: IL-SANOFI-AVENTIS-2011SA044081

PATIENT
  Age: 90 Year
  Sex: Male
  Weight: 77 kg

DRUGS (8)
  1. ALL OTHER THERAPEUTIC PRODUCTS [Concomitant]
     Dates: start: 20110302
  2. DRONEDARONE HCL [Suspect]
     Indication: ATRIAL FIBRILLATION
     Route: 048
     Dates: start: 20110131, end: 20110306
  3. WARFARIN SODIUM [Concomitant]
  4. SIMVASTATIN [Concomitant]
  5. REPAGLINIDE [Concomitant]
  6. BISOPROLOL [Concomitant]
     Indication: HEART RATE
  7. FUROSEMIDE [Concomitant]
     Indication: HYPERTENSION
  8. ASPIRIN [Concomitant]

REACTIONS (1)
  - CARDIAC FAILURE [None]
